FAERS Safety Report 21726011 (Version 4)
Quarter: 2023Q2

REPORT INFORMATION
  Report Type: Report from Study
  Country: US (occurrence: US)
  Receive Date: 20221214
  Receipt Date: 20230407
  Transmission Date: 20230722
  Serious: Yes (Hospitalization, Other)
  Sender: FDA-Public Use
  Company Number: US-ABBVIE-4233641

PATIENT
  Age: 67 Year
  Sex: Male

DRUGS (2)
  1. HUMIRA [Suspect]
     Active Substance: ADALIMUMAB
     Indication: Psoriasis
     Route: 058
     Dates: start: 20150112, end: 2022
  2. HUMIRA [Suspect]
     Active Substance: ADALIMUMAB

REACTIONS (6)
  - Coronary artery bypass [Recovering/Resolving]
  - Spinal operation [Unknown]
  - Coronary artery bypass [Recovering/Resolving]
  - Rash [Unknown]
  - Scar [Unknown]
  - Cough [Unknown]

NARRATIVE: CASE EVENT DATE: 20221101
